FAERS Safety Report 21885937 (Version 1)
Quarter: 2023Q1

REPORT INFORMATION
  Report Type: Spontaneous
  Country: PE (occurrence: PE)
  Receive Date: 20230119
  Receipt Date: 20230119
  Transmission Date: 20230418
  Serious: Yes (Other)
  Sender: FDA-Public Use
  Company Number: PE-STERISCIENCE B.V.-2023-ST-000166

PATIENT
  Sex: Male
  Weight: 2.06 kg

DRUGS (3)
  1. MIDAZOLAM [Suspect]
     Active Substance: MIDAZOLAM
     Indication: Product used for unknown indication
     Dosage: UNK
     Route: 064
     Dates: start: 2015
  2. FENTANYL [Suspect]
     Active Substance: FENTANYL
     Indication: Product used for unknown indication
     Dosage: UNK
     Route: 064
     Dates: start: 2015
  3. RABIES VACCINE [Suspect]
     Active Substance: RABIES VACCINE
     Indication: Product used for unknown indication
     Dosage: PATIENT^S MOTHER RECEIVED FIVE DOSES
     Route: 064
     Dates: start: 2015

REACTIONS (4)
  - Premature baby [Unknown]
  - Low birth weight baby [Unknown]
  - Neonatal respiratory distress [Recovered/Resolved]
  - Foetal exposure during pregnancy [Unknown]

NARRATIVE: CASE EVENT DATE: 20150101
